FAERS Safety Report 7778526-2 (Version None)
Quarter: 2011Q3

REPORT INFORMATION
  Report Type: 
  Country: None (occurrence: None)
  Receive Date: 20110926
  Receipt Date: 20110913
  Transmission Date: 20111222
  Serious: Yes (Hospitalization, Other)
  Sender: FDA-Public Use
  Company Number: US-BAYER-2011-021155

PATIENT
  Age: 46 Year
  Weight: 113 kg

DRUGS (1)
  1. DROSPIRENONE AND ETHINYL ESTRADIOL [Suspect]
     Dosage: UNK
     Dates: start: 20080901, end: 20090901

REACTIONS (9)
  - INJURY [None]
  - PAIN [None]
  - PNEUMONIA [None]
  - EMOTIONAL DISTRESS [None]
  - DYSPNOEA [None]
  - PULMONARY EMBOLISM [None]
  - ANXIETY [None]
  - GENERAL PHYSICAL HEALTH DETERIORATION [None]
  - GALLBLADDER DISORDER [None]
